FAERS Safety Report 17216361 (Version 2)
Quarter: 2020Q1

REPORT INFORMATION
  Report Type: Spontaneous
  Country: US (occurrence: US)
  Receive Date: 20191230
  Receipt Date: 20200108
  Transmission Date: 20200409
  Serious: No
  Sender: FDA-Public Use
  Company Number: US-TEVA-2019-US-1160483

PATIENT
  Sex: Female

DRUGS (1)
  1. CLONAZEPAM ACTAVIS [Suspect]
     Active Substance: CLONAZEPAM
     Indication: BRAIN INJURY
     Dosage: 0.5 MG TABLET; QUARTER OF IT IN THE AM AND HALF AT NIGHT
     Route: 065

REACTIONS (2)
  - Drug intolerance [Unknown]
  - Product substitution issue [Unknown]
